FAERS Safety Report 6421492-2 (Version None)
Quarter: 2009Q4

REPORT INFORMATION
  Report Type: 
  Country: None (occurrence: None)
  Receive Date: 20091030
  Receipt Date: 20091019
  Transmission Date: 20100525
  Serious: Yes (Hospitalization)
  Sender: FDA-Public Use
  Company Number: US-PFIZER INC-2009285309

PATIENT
  Age: 61 Year
  Sex: Male
  Weight: 80.9 kg

DRUGS (1)
  1. CHANTIX [Suspect]
     Indication: SMOKING CESSATION THERAPY
     Dosage: 1 MG, 2X/DAY
     Route: 048
     Dates: start: 20090320, end: 20090413

REACTIONS (3)
  - CHEST PAIN [None]
  - HICCUPS [None]
  - PARAESTHESIA [None]
